FAERS Safety Report 9444262 (Version 1)
Quarter: 2013Q3

REPORT INFORMATION
  Report Type: Report from Study
  Country: US (occurrence: US)
  Receive Date: 20130807
  Receipt Date: 20130807
  Transmission Date: 20140515
  Serious: No
  Sender: FDA-Public Use
  Company Number: PHEH2013US016654

PATIENT
  Age: 65 Year
  Sex: Male

DRUGS (6)
  1. TASIGNA [Suspect]
     Indication: CHRONIC MYELOID LEUKAEMIA
     Dosage: 200 MG, BID
     Route: 048
     Dates: start: 20101125
  2. SONATA [Concomitant]
  3. LOMOTIL                            /00034001/ [Concomitant]
  4. EFFEXOR [Concomitant]
  5. NEXIUM//ESOMEPRAZOLE SODIUM [Concomitant]
  6. FLEXERIL [Concomitant]

REACTIONS (1)
  - Food interaction [Recovered/Resolved]
